FAERS Safety Report 9761232 (Version 1)
Quarter: 2013Q4

REPORT INFORMATION
  Report Type: Other
  Country: HK (occurrence: HK)
  Receive Date: 20131216
  Receipt Date: 20131216
  Transmission Date: 20140711
  Serious: Yes (Other)
  Sender: FDA-Public Use
  Company Number: HK-BRISTOL-MYERS SQUIBB COMPANY-19917004

PATIENT
  Sex: 0

DRUGS (1)
  1. ERBITUX [Suspect]
     Indication: SQUAMOUS CELL CARCINOMA OF HEAD AND NECK

REACTIONS (6)
  - Renal impairment [Unknown]
  - Immunosuppression [Unknown]
  - Nausea [Unknown]
  - Vomiting [Unknown]
  - Skin reaction [Unknown]
  - Rash [Unknown]
